FAERS Safety Report 5040367-7 (Version None)
Quarter: 2006Q2

REPORT INFORMATION
  Report Type: 
  Country: None (occurrence: None)
  Receive Date: 20060601
  Receipt Date: 20060107
  Transmission Date: 20061013
  Serious: No
  Sender: FDA-Public Use
  Company Number: 2006PV006835

PATIENT
  Sex: Female
  Weight: 88.4514 kg

DRUGS (4)
  1. BYETTA [Suspect]
     Indication: DIABETES MELLITUS NON-INSULIN-DEPENDENT
     Dosage: SEE IMAGE
     Route: 058
     Dates: start: 20050701, end: 20051001
  2. BYETTA [Suspect]
     Indication: DIABETES MELLITUS NON-INSULIN-DEPENDENT
     Dosage: SEE IMAGE
     Route: 058
     Dates: start: 20051001
  3. FORAMET [Concomitant]
  4. GLIPIZIDE [Concomitant]

REACTIONS (3)
  - FEELING COLD [None]
  - NAUSEA [None]
  - WEIGHT DECREASED [None]
